FAERS Safety Report 6317075-5 (Version None)
Quarter: 2009Q3

REPORT INFORMATION
  Report Type: 
  Country: None (occurrence: None)
  Receive Date: 20090820
  Receipt Date: 20090818
  Transmission Date: 20100115
  Serious: Yes (Other)
  Sender: FDA-Public Use
  Company Number: US-AMGEN-US358823

PATIENT
  Sex: Male
  Weight: 60 kg

DRUGS (14)
  1. NPLATE [Suspect]
     Indication: IDIOPATHIC THROMBOCYTOPENIC PURPURA
     Route: 058
     Dates: start: 20090702
  2. VINCRISTINE [Suspect]
     Dates: start: 20090729
  3. RITUXIMAB [Concomitant]
     Dates: start: 20070619
  4. DANAZOL [Concomitant]
     Dates: start: 20090624
  5. COLCHICINE [Concomitant]
     Dates: start: 20090624
  6. DAPSONE [Concomitant]
     Dates: start: 20090624
  7. FINASTERIDE [Concomitant]
  8. OMEPRAZOLE [Concomitant]
  9. TERAZOSIN [Concomitant]
  10. METOPROLOL [Concomitant]
  11. CARBIDOPA [Concomitant]
  12. LEVODOPA [Concomitant]
  13. MEGESTROL ACETATE [Concomitant]
  14. DOCUSATE [Concomitant]

REACTIONS (4)
  - ALANINE AMINOTRANSFERASE INCREASED [None]
  - ASPARTATE AMINOTRANSFERASE INCREASED [None]
  - LIVER FUNCTION TEST ABNORMAL [None]
  - THERAPEUTIC RESPONSE DECREASED [None]
